FAERS Safety Report 8405331-6 (Version None)
Quarter: 2012Q2

REPORT INFORMATION
  Report Type: 
  Country: None (occurrence: None)
  Receive Date: 20120323
  Receipt Date: 20110817
  Transmission Date: 20120825
  Serious: Yes (Hospitalization, Other)
  Sender: FDA-Public Use
  Company Number: 163-21880-11050279

PATIENT
  Age: 72 Year
  Sex: Male

DRUGS (7)
  1. VITAMIN D [Concomitant]
  2. PLAVIX [Concomitant]
  3. LEVOTHYROXINE SODIUM [Concomitant]
  4. LIPITOR [Concomitant]
  5. REVLIMID [Suspect]
     Indication: MULTIPLE MYELOMA
     Dosage: 25 MG, DAILY X 21 DAYS, PO
     Route: 048
     Dates: start: 20110405, end: 20110507
  6. ASPIRIN [Concomitant]
  7. DEXAMETHASONE [Concomitant]

REACTIONS (5)
  - PLATELET COUNT DECREASED [None]
  - RENAL FAILURE [None]
  - CONSTIPATION [None]
  - WEIGHT DECREASED [None]
  - FATIGUE [None]
